FAERS Safety Report 12266790 (Version 1)
Quarter: 2016Q2

REPORT INFORMATION
  Report Type: Spontaneous
  Country: US (occurrence: None)
  Receive Date: 20160413
  Receipt Date: 20160413
  Transmission Date: 20160815
  Serious: Yes (Life-Threatening, Disabling)
  Sender: FDA-Public Use
  Company Number: None

PATIENT
  Age: 25 Year
  Sex: Male
  Weight: 74.84 kg

DRUGS (7)
  1. TRILEPTAL [Suspect]
     Active Substance: OXCARBAZEPINE
     Dates: end: 2013
  2. TRAZODONE [Suspect]
     Active Substance: TRAZODONE HYDROCHLORIDE
     Dates: end: 2013
  3. XANAX [Suspect]
     Active Substance: ALPRAZOLAM
  4. BIOTIN GUMMIES [Concomitant]
  5. ABILIFY [Suspect]
     Active Substance: ARIPIPRAZOLE
     Indication: PRODUCT USED FOR UNKNOWN INDICATION
     Route: 048
     Dates: start: 201304, end: 2015
  6. VITAMIN C [Concomitant]
     Active Substance: ASCORBIC ACID
  7. PROZAC [Suspect]
     Active Substance: FLUOXETINE HYDROCHLORIDE
     Dates: end: 2015

REACTIONS (19)
  - Dehydration [None]
  - Restlessness [None]
  - Burning sensation [None]
  - Pain [None]
  - Eye pain [None]
  - Sleep paralysis [None]
  - Chest pain [None]
  - Asthenia [None]
  - Dry skin [None]
  - Dry mouth [None]
  - Alopecia [None]
  - Haematemesis [None]
  - Oral pain [None]
  - Foreign body [None]
  - Heart rate decreased [None]
  - Skin exfoliation [None]
  - Eye pruritus [None]
  - Fatigue [None]
  - Insomnia [None]

NARRATIVE: CASE EVENT DATE: 201304
